FAERS Safety Report 7549034-9 (Version None)
Quarter: 2011Q2

REPORT INFORMATION
  Report Type: 
  Country: None (occurrence: None)
  Receive Date: 20110615
  Receipt Date: 20110613
  Transmission Date: 20111010
  Serious: Yes (Other)
  Sender: FDA-Public Use
  Company Number: US-PFIZER INC-2011117687

PATIENT
  Sex: Female
  Weight: 113 kg

DRUGS (3)
  1. CELEBREX [Suspect]
     Indication: TRAUMATIC FRACTURE
  2. CELEBREX [Suspect]
     Indication: OSTEOARTHRITIS
     Dosage: 200 MG, DAILY
     Route: 048
     Dates: end: 20110510
  3. PERCOCET [Concomitant]
     Indication: PAIN
     Dosage: 5 /325 MG

REACTIONS (1)
  - FRACTURE [None]
